FAERS Safety Report 9546712 (Version 1)
Quarter: 2013Q3

REPORT INFORMATION
  Report Type: Spontaneous
  Country: US (occurrence: US)
  Receive Date: 20130924
  Receipt Date: 20130924
  Transmission Date: 20140515
  Serious: No
  Sender: FDA-Public Use
  Company Number: US-009507513-1309USA004489

PATIENT
  Age: 55 Year
  Sex: Male

DRUGS (4)
  1. VYTORIN [Suspect]
     Indication: HYPERLIPIDAEMIA
     Dosage: 10/20MG ONCE DAILY
     Route: 048
     Dates: end: 20130909
  2. ZOCOR [Suspect]
     Dosage: UNK
     Route: 048
  3. AMLODIPINE [Concomitant]
  4. BENAZEPRIL HYDROCHLORIDE [Concomitant]

REACTIONS (1)
  - Liver function test abnormal [Unknown]
